FAERS Safety Report 9364508 (Version 1)
Quarter: 2013Q2

REPORT INFORMATION
  Report Type: Spontaneous
  Country: GB (occurrence: GB)
  Receive Date: 20130624
  Receipt Date: 20130624
  Transmission Date: 20140414
  Serious: Yes (Other)
  Sender: FDA-Public Use
  Company Number: GB-TEVA-413459ISR

PATIENT
  Age: 57 Year
  Sex: Female
  Weight: 77.1 kg

DRUGS (8)
  1. ATORVASTATIN [Suspect]
     Dates: start: 20130228
  2. PREMIQUE [Concomitant]
     Dates: start: 20121207
  3. MOMETASONE [Concomitant]
     Dates: start: 20130208
  4. LORATADINE [Concomitant]
     Dates: start: 20130208
  5. RAMIPRIL [Concomitant]
     Dates: start: 20130228
  6. SYMBICORT [Concomitant]
     Dates: start: 20130228, end: 20130424
  7. SYMBICORT [Concomitant]
     Dates: start: 20130528
  8. CHLORPHENAMINE [Concomitant]
     Dates: start: 20130318

REACTIONS (6)
  - Headache [Recovered/Resolved]
  - Epistaxis [Unknown]
  - Oropharyngeal pain [Unknown]
  - Nausea [Unknown]
  - Constipation [Unknown]
  - Pruritus [Unknown]
